FAERS Safety Report 6684310-3 (Version None)
Quarter: 2010Q2

REPORT INFORMATION
  Report Type: 
  Country: None (occurrence: None)
  Receive Date: 20100416
  Receipt Date: 20100406
  Transmission Date: 20101027
  Serious: Yes (Other)
  Sender: FDA-Public Use
  Company Number: PHHY2010US21850

PATIENT
  Sex: Male

DRUGS (14)
  1. DIOVAN [Suspect]
     Dosage: 160 MG, UNK
  2. MORPHINE [Suspect]
  3. BACTRIM [Concomitant]
     Dosage: TWICE A DAY
  4. PRILOSEC [Concomitant]
  5. ASPIRIN [Concomitant]
  6. DYAZIDE [Concomitant]
  7. SIMVASTATIN [Concomitant]
  8. ZYRTEC [Concomitant]
  9. FOSAMAX [Concomitant]
  10. MUJIL [Concomitant]
     Dosage: 250 MG, UNK
  11. FLEX PROTEX [Concomitant]
  12. VITAMIN D3 [Concomitant]
  13. BRITE SMART [Concomitant]
  14. OXYCODONE [Concomitant]
     Dosage: 5MG-325 MG

REACTIONS (8)
  - BLOOD URINE PRESENT [None]
  - FEMORAL ARTERY OCCLUSION [None]
  - HYPERTENSION [None]
  - INFECTION [None]
  - MYOCARDIAL INFARCTION [None]
  - SKIN CANCER [None]
  - SPINAL DISORDER [None]
  - SURGERY [None]
